FAERS Safety Report 4343484-X (Version None)
Quarter: 2004Q2

REPORT INFORMATION
  Report Type: 
  Country: None (occurrence: None)
  Receive Date: 20040421
  Receipt Date: 20040421
  Transmission Date: 20050107
  Serious: No
  Sender: FDA-Public Use
  Company Number: None

PATIENT
  Sex: Male
  Weight: 75 kg

DRUGS (2)
  1. ARSENIC TRIOXIDE [Suspect]
     Indication: METASTATIC MALIGNANT MELANOMA
     Dosage: 19 MG IV QD X 5 DAYS
     Route: 042
     Dates: start: 20040412, end: 20040416
  2. ASCORBIC ACID [Suspect]
     Indication: METASTATIC MALIGNANT MELANOMA
     Dosage: 1000 MG IV QD X 5 DAYS
     Route: 042
     Dates: start: 20040412, end: 20040416

REACTIONS (5)
  - ALANINE AMINOTRANSFERASE INCREASED [None]
  - ASPARTATE AMINOTRANSFERASE INCREASED [None]
  - BLOOD CALCIUM INCREASED [None]
  - FATIGUE [None]
  - VOMITING [None]
